FAERS Safety Report 7150077 (Version 2)
Quarter: 2012Q4

REPORT INFORMATION
  Report Type: Report from Study
  Country: KR (occurrence: KR)
  Receive Date: 20091015
  Receipt Date: 20120911
  Transmission Date: 20130627
  Serious: Yes (Hospitalization)
  Sender: FDA-Public Use
  Company Number: PHHO2009KR12495

PATIENT
  Age: 43 Year
  Sex: Male
  Weight: 40 kg

DRUGS (3)
  1. ACLASTA [Suspect]
     Indication: OSTEONECROSIS
     Dosage: 5 mg, UNK
     Route: 042
     Dates: start: 20090915
  2. VITAMIN D [Concomitant]
  3. CALCIUM [Concomitant]

REACTIONS (4)
  - Osteonecrosis [Recovering/Resolving]
  - Bone disorder [Recovering/Resolving]
  - Arthralgia [Recovering/Resolving]
  - Disease progression [Recovering/Resolving]
